FAERS Safety Report 9079082 (Version 1)
Quarter: 2013Q1

REPORT INFORMATION
  Report Type: Spontaneous
  Country: DK (occurrence: DE)
  Receive Date: 20130130
  Receipt Date: 20130130
  Transmission Date: 20140127
  Serious: Yes (Hospitalization, Other)
  Sender: FDA-Public Use
  Company Number: DE-FRI-1000042241

PATIENT
  Age: 61 Year
  Sex: Female

DRUGS (2)
  1. CITALOPRAM [Suspect]
     Route: 048
  2. GLUTRIL [Concomitant]
     Indication: DIABETES MELLITUS

REACTIONS (3)
  - Polymyalgia rheumatica [Recovering/Resolving]
  - Myalgia [Recovering/Resolving]
  - Red blood cell sedimentation rate increased [Recovering/Resolving]
